FAERS Safety Report 4590216-6 (Version None)
Quarter: 2005Q1

REPORT INFORMATION
  Report Type: 
  Country: None (occurrence: None)
  Receive Date: 20050224
  Receipt Date: 20050214
  Transmission Date: 20050727
  Serious: Yes (Hospitalization)
  Sender: FDA-Public Use
  Company Number: GB-JNJFOC-20050203511

PATIENT
  Age: 51 Year
  Sex: Male

DRUGS (1)
  1. IBUPROFEN [Suspect]
     Indication: HEADACHE
     Route: 049

REACTIONS (5)
  - BLOOD PRESSURE DECREASED [None]
  - CIRCULATORY COLLAPSE [None]
  - DUODENAL ULCER HAEMORRHAGE [None]
  - HAEMATEMESIS [None]
  - MELAENA [None]
